FAERS Safety Report 19680257 (Version 1)
Quarter: 2021Q3

REPORT INFORMATION
  Report Type: Spontaneous
  Country: AR (occurrence: AR)
  Receive Date: 20210810
  Receipt Date: 20210810
  Transmission Date: 20211014
  Serious: Yes (Other)
  Sender: FDA-Public Use
  Company Number: AR-PFIZER INC-202100969802

PATIENT
  Age: 48 Year
  Sex: Male

DRUGS (3)
  1. JANVAX [Suspect]
     Active Substance: TOFACITINIB
     Dosage: UNK
     Dates: start: 202104
  2. XELJANZ [Suspect]
     Active Substance: TOFACITINIB CITRATE
     Indication: RHEUMATOID ARTHRITIS
     Dosage: 5 MG, 2X/DAY
     Dates: start: 20160903, end: 202104
  3. TOFACITINIB [Suspect]
     Active Substance: TOFACITINIB
     Dosage: UNK
     Dates: start: 202107

REACTIONS (2)
  - Product dispensing error [Unknown]
  - Arrhythmia [Recovered/Resolved]

NARRATIVE: CASE EVENT DATE: 202104
